FAERS Safety Report 6257307-5 (Version None)
Quarter: 2009Q3

REPORT INFORMATION
  Report Type: 
  Country: None (occurrence: None)
  Receive Date: 20090706
  Receipt Date: 20090629
  Transmission Date: 20100115
  Serious: Yes (Hospitalization, Other)
  Sender: FDA-Public Use
  Company Number: JP-WYE-H09623809

PATIENT
  Sex: Male

DRUGS (4)
  1. ZOSYN [Suspect]
     Indication: PNEUMONIA ASPIRATION
     Route: 041
     Dates: start: 20090520, end: 20090524
  2. PIMOBENDAN [Concomitant]
     Route: 048
     Dates: start: 20090509, end: 20090521
  3. GENTAMICIN [Concomitant]
     Route: 041
     Dates: start: 20090520, end: 20090524
  4. LASIX [Concomitant]
     Route: 048
     Dates: start: 20090428, end: 20090521

REACTIONS (3)
  - DEPRESSED LEVEL OF CONSCIOUSNESS [None]
  - HYPERNATRAEMIA [None]
  - SEPSIS [None]
